FAERS Safety Report 18177734 (Version 2)
Quarter: 2020Q3

REPORT INFORMATION
  Report Type: Spontaneous
  Country: FR (occurrence: FR)
  Receive Date: 20200821
  Receipt Date: 20200909
  Transmission Date: 20201103
  Serious: Yes (Hospitalization, Other)
  Sender: FDA-Public Use
  Company Number: FR-AUROBINDO-AUR-APL-2020-039882

PATIENT
  Age: 60 Year
  Sex: Male
  Weight: 100.5 kg

DRUGS (6)
  1. NEFOPAM MYLAN [Suspect]
     Active Substance: NEFOPAM
     Indication: PAIN
     Dosage: 20MG/2ML /JOUR (DAY)
     Route: 042
     Dates: start: 20200629, end: 20200707
  2. EUPRESSYL [Suspect]
     Active Substance: URAPIDIL
     Indication: HYPERTENSION
     Dosage: 50MG/10ML /DAY
     Route: 042
     Dates: start: 20200701, end: 20200708
  3. CIPROFLOXACINE KABI [Suspect]
     Active Substance: CIPROFLOXACIN
     Indication: LUNG DISORDER
     Dosage: 400MG/200ML /JOUR (DAY)
     Route: 042
     Dates: start: 20200703, end: 20200706
  4. PANTOPRAZOLE SODIUM. [Suspect]
     Active Substance: PANTOPRAZOLE SODIUM
     Indication: PRODUCT USED FOR UNKNOWN INDICATION
     Dosage: 40 MILLIGRAM, ONCE A DAY
     Route: 042
     Dates: start: 20200702
  5. CEFTAZIDIME MYLAN [Suspect]
     Active Substance: CEFTAZIDIME
     Indication: LUNG DISORDER
     Dosage: 2 GRAM, ONCE A DAY
     Route: 042
     Dates: start: 20200703, end: 20200710
  6. LASILIX SPECIAL [Suspect]
     Active Substance: FUROSEMIDE
     Indication: PRODUCT USED FOR UNKNOWN INDICATION
     Dosage: 1 DOSAGE FORM, ONCE A DAY
     Route: 042
     Dates: start: 20200703, end: 20200708

REACTIONS (4)
  - Coma [Recovering/Resolving]
  - Acute kidney injury [Not Recovered/Not Resolved]
  - Encephalopathy [Recovering/Resolving]
  - Altered state of consciousness [Recovering/Resolving]

NARRATIVE: CASE EVENT DATE: 20200707
